FAERS Safety Report 21145962 (Version 5)
Quarter: 2022Q4

REPORT INFORMATION
  Report Type: Report from Study
  Country: US (occurrence: None)
  Receive Date: 20220729
  Receipt Date: 20221121
  Transmission Date: 20230113
  Serious: Yes (Hospitalization, Other)
  Sender: FDA-Public Use
  Company Number: US-Merck Healthcare KGaA-9335380

PATIENT
  Age: 57 Year
  Sex: Female

DRUGS (3)
  1. REBIF [Suspect]
     Active Substance: INTERFERON BETA-1A
     Indication: Relapsing-remitting multiple sclerosis
     Dosage: PREVIOUSLY REBIJECT II, PREFILLED SYRINGE
     Route: 058
     Dates: start: 20100210, end: 20220624
  2. REBIF [Suspect]
     Active Substance: INTERFERON BETA-1A
     Route: 058
     Dates: start: 20220815
  3. REBIF [Suspect]
     Active Substance: INTERFERON BETA-1A
     Dosage: PREFILLED SYRINGE
     Route: 058

REACTIONS (9)
  - Brain oedema [Unknown]
  - Brain injury [Unknown]
  - Seizure [Unknown]
  - COVID-19 [Unknown]
  - Urinary tract infection [Unknown]
  - Dysphagia [Recovering/Resolving]
  - Pain [Unknown]
  - Hypersomnia [Unknown]
  - Product administration interrupted [Unknown]

NARRATIVE: CASE EVENT DATE: 20220622
